FAERS Safety Report 20813231 (Version 1)
Quarter: 2022Q2

REPORT INFORMATION
  Report Type: Spontaneous
  Country: FR (occurrence: FR)
  Receive Date: 20220511
  Receipt Date: 20220511
  Transmission Date: 20220721
  Serious: Yes (Death)
  Sender: FDA-Public Use
  Company Number: None

PATIENT
  Age: 72 Year
  Sex: Male
  Weight: 85 kg

DRUGS (5)
  1. DEXAMETHASONE [Suspect]
     Active Substance: DEXAMETHASONE
     Indication: Plasma cell myeloma
     Route: 065
     Dates: start: 20220203, end: 20220203
  2. REVLIMID [Suspect]
     Active Substance: LENALIDOMIDE
     Indication: Plasma cell myeloma
     Dosage: 1 CYCLICAL, 1 FDJ THE FIRST 21 DAYS OF THE MONTH.
     Route: 048
     Dates: start: 20220203, end: 20220206
  3. DARZALEX [Suspect]
     Active Substance: DARATUMUMAB
     Indication: Plasma cell myeloma
     Route: 058
     Dates: start: 20220203, end: 20220203
  4. PRISTINAMYCIN [Concomitant]
     Active Substance: PRISTINAMYCIN
     Indication: Product used for unknown indication
  5. FILGRASTIM [Concomitant]
     Active Substance: FILGRASTIM
     Indication: Product used for unknown indication

REACTIONS (3)
  - Febrile bone marrow aplasia [Fatal]
  - Pneumocystis jirovecii pneumonia [Fatal]
  - Septic shock [Fatal]

NARRATIVE: CASE EVENT DATE: 20220204
